FAERS Safety Report 5223385-5 (Version None)
Quarter: 2007Q1

REPORT INFORMATION
  Report Type: 
  Country: None (occurrence: None)
  Receive Date: 20070129
  Receipt Date: 20070119
  Transmission Date: 20070707
  Serious: Yes (Death, Hospitalization, Other)
  Sender: FDA-Public Use
  Company Number: FR-ABBOTT-06P-056-0339213-00

PATIENT
  Age: 65 Year
  Sex: Male

DRUGS (10)
  1. SEVORANE [Suspect]
     Indication: ANAESTHESIA
     Route: 055
     Dates: start: 20060517, end: 20060517
  2. FACTOR I (FIBRINOGEN) [Suspect]
     Indication: RENAL DISORDER
     Dates: start: 20060517, end: 20060517
  3. NIMBEX [Suspect]
     Indication: ANAESTHESIA
     Route: 042
     Dates: start: 20060517, end: 20060517
  4. PROPOFOL [Suspect]
     Indication: ANAESTHESIA
     Route: 042
     Dates: start: 20060517, end: 20060517
  5. SUFENTANIL CITRATE [Suspect]
     Indication: ANAESTHESIA
     Route: 042
     Dates: start: 20060517, end: 20060517
  6. THROMBIN LOCAL SOLUTION [Suspect]
     Indication: DRUG USE FOR UNKNOWN INDICATION
     Dates: start: 20060517, end: 20060517
  7. CLONIDINE [Concomitant]
     Indication: DRUG USE FOR UNKNOWN INDICATION
     Dates: start: 20060517, end: 20060517
  8. ACETAMINOPHEN [Concomitant]
     Indication: DRUG USE FOR UNKNOWN INDICATION
     Dates: start: 20060517, end: 20060517
  9. PIRITRAMIDE [Concomitant]
     Indication: DRUG USE FOR UNKNOWN INDICATION
     Dates: start: 20060517, end: 20060517
  10. ONDANSETRON [Concomitant]
     Indication: DRUG USE FOR UNKNOWN INDICATION
     Dates: start: 20060517, end: 20060517

REACTIONS (6)
  - CANDIDA SEPSIS [None]
  - LARYNGEAL OEDEMA [None]
  - MYDRIASIS [None]
  - RESPIRATORY ARREST [None]
  - RESPIRATORY DISORDER [None]
  - RESPIRATORY DISTRESS [None]
